FAERS Safety Report 6771533-8 (Version None)
Quarter: 2010Q2

REPORT INFORMATION
  Report Type: 
  Country: None (occurrence: None)
  Receive Date: 20100616
  Receipt Date: 20100604
  Transmission Date: 20101027
  Serious: Yes (Life-Threatening)
  Sender: FDA-Public Use
  Company Number: JP-ROCHE-708293

PATIENT
  Age: 53 Year
  Sex: Male

DRUGS (3)
  1. AVASTIN [Suspect]
     Indication: LUNG ADENOCARCINOMA
     Route: 041
     Dates: start: 20100324
  2. CARBOPLATIN [Concomitant]
     Dosage: DOSE IS UNCERTAIN: 2 COURSE.
     Route: 041
  3. TAXOTERE [Concomitant]
     Dosage: DOSE IS UNCERTAIN: 2 COURSE. DRUG REPORTED: TAXOTERE                    ( DOCETAXEL HYDRATE)
     Route: 041

REACTIONS (1)
  - INTESTINAL OBSTRUCTION [None]
